FAERS Safety Report 20938630 (Version 1)
Quarter: 2022Q2

REPORT INFORMATION
  Report Type: Spontaneous
  Country: GB (occurrence: GB)
  Receive Date: 20220609
  Receipt Date: 20220609
  Transmission Date: 20220721
  Serious: Yes (Other)
  Sender: FDA-Public Use
  Company Number: GB-Bristol Laboratories Ltd-BLL202205-000096

PATIENT

DRUGS (1)
  1. LOSARTAN POTASSIUM [Suspect]
     Active Substance: LOSARTAN POTASSIUM
     Indication: Product used for unknown indication
     Dosage: LOSARTAN POTASSIUM 25MG TABLETS

REACTIONS (3)
  - Joint swelling [Unknown]
  - Tremor [Unknown]
  - Dyspnoea [Unknown]
